FAERS Safety Report 11301708 (Version 1)
Quarter: 2015Q3

REPORT INFORMATION
  Report Type: Spontaneous
  Country: US (occurrence: US)
  Receive Date: 20150722
  Receipt Date: 20150722
  Transmission Date: 20151125
  Serious: No
  Sender: FDA-Public Use
  Company Number: US-ELI_LILLY_AND_COMPANY-US200903002749

PATIENT
  Sex: Female

DRUGS (4)
  1. HUMATROPE [Suspect]
     Active Substance: SOMATROPIN
     Dosage: 3.2 MG, UNK
  2. HUMATROPE [Suspect]
     Active Substance: SOMATROPIN
     Dosage: 1.2 MG, UNK
     Dates: end: 200809
  3. HUMATROPE [Suspect]
     Active Substance: SOMATROPIN
     Dosage: 3.2 MG, UNK
     Dates: start: 200809
  4. HUMATROPE [Suspect]
     Active Substance: SOMATROPIN
     Dosage: 3.2 MG, UNK

REACTIONS (3)
  - Injection site bruising [Unknown]
  - Injection site pain [Not Recovered/Not Resolved]
  - Injection site nodule [Unknown]

NARRATIVE: CASE EVENT DATE: 200809
